FAERS Safety Report 8437428-9 (Version None)
Quarter: 2012Q2

REPORT INFORMATION
  Report Type: 
  Country: None (occurrence: None)
  Receive Date: 20120614
  Receipt Date: 20120323
  Transmission Date: 20120825
  Serious: No
  Sender: FDA-Public Use
  Company Number: US-AMGEN-USASP2012019131

PATIENT
  Sex: Female

DRUGS (5)
  1. ASPIRIN [Concomitant]
  2. PROLIA [Suspect]
     Indication: OSTEOPOROSIS POSTMENOPAUSAL
     Dosage: UNK UNK, Q6MO
     Dates: start: 20110901
  3. METOPROLOL TARTRATE [Concomitant]
  4. COQ10 [Concomitant]
  5. SIMVASTATIN [Concomitant]

REACTIONS (2)
  - ARTHRALGIA [None]
  - IMPAIRED HEALING [None]
